FAERS Safety Report 6344303-2 (Version None)
Quarter: 2009Q3

REPORT INFORMATION
  Report Type: 
  Country: None (occurrence: None)
  Receive Date: 20090821
  Receipt Date: 20090422
  Transmission Date: 20100115
  Serious: No
  Sender: FDA-Public Use
  Company Number: 8045239

PATIENT
  Age: 42 Year
  Sex: Male
  Weight: 104.3 kg

DRUGS (11)
  1. CIMZIA [Suspect]
     Indication: CROHN'S DISEASE
     Dosage: 400 MG SC
     Route: 058
     Dates: start: 20090320
  2. AZATHIOPRINE [Concomitant]
  3. ALLOPURINOL [Concomitant]
  4. DIPENTUM [Concomitant]
  5. PREDNISONE [Concomitant]
  6. CARTIA XT [Concomitant]
  7. LOVAZA [Concomitant]
  8. FOSAMAX PLUS D [Concomitant]
  9. PAXIL [Concomitant]
  10. LORAZEPAM [Concomitant]
  11. PROBIOTICA [Concomitant]

REACTIONS (1)
  - RASH PRURITIC [None]
